FAERS Safety Report 25510060 (Version 5)
Quarter: 2025Q3

REPORT INFORMATION
  Report Type: Spontaneous
  Country: US (occurrence: US)
  Receive Date: 20250703
  Receipt Date: 20250811
  Transmission Date: 20251021
  Serious: Yes (Hospitalization, Other)
  Sender: AMGEN
  Company Number: EU-AMGEN-USASP2025127148

PATIENT
  Age: 75 Year
  Sex: Male
  Weight: 87 kg

DRUGS (16)
  1. BLINCYTO [Suspect]
     Active Substance: BLINATUMOMAB
     Indication: Squamous cell carcinoma
     Route: 040
     Dates: start: 20250530, end: 20250615
  2. BLINCYTO [Suspect]
     Active Substance: BLINATUMOMAB
     Route: 040
     Dates: start: 20250627, end: 20250702
  3. HYDROXYZINE [Concomitant]
     Active Substance: HYDROXYZINE HYDROCHLORIDE
     Dates: start: 20241108
  4. SILVER SULFADIAZINE [Concomitant]
     Active Substance: SILVER SULFADIAZINE
     Dates: start: 20241210
  5. LISINOPRIL [Concomitant]
     Active Substance: LISINOPRIL
     Dates: start: 20250515
  6. SILODOSIN [Concomitant]
     Active Substance: SILODOSIN
     Dates: start: 20240828
  7. ACETAMINOPHEN\HYDROCODONE [Concomitant]
     Active Substance: ACETAMINOPHEN\HYDROCODONE
     Dates: start: 20250509
  8. BENZONATATE [Concomitant]
     Active Substance: BENZONATATE
     Dates: start: 20250529
  9. SODIUM CHLORIDE [Concomitant]
     Active Substance: SODIUM CHLORIDE
     Dates: start: 20250311, end: 2025
  10. SODIUM CHLORIDE [Concomitant]
     Active Substance: SODIUM CHLORIDE
     Dates: start: 20250529
  11. ONDANSETRON [Concomitant]
     Active Substance: ONDANSETRON
     Dates: start: 20250612
  12. HEPARIN [Concomitant]
     Active Substance: HEPARIN SODIUM
     Dates: start: 20250613
  13. PANTOPRAZOLE [Concomitant]
     Active Substance: PANTOPRAZOLE
     Dates: start: 20250613
  14. LACTATED RINGERS SOLUTION [Concomitant]
     Active Substance: CALCIUM CHLORIDE\POTASSIUM CHLORIDE\SODIUM CHLORIDE\SODIUM LACTATE
     Dates: start: 20250614
  15. ZINC SULFATE [Concomitant]
     Active Substance: ZINC SULFATE
     Dates: start: 20250614
  16. ASCORBIC ACID [Concomitant]
     Active Substance: ASCORBIC ACID
     Dates: start: 20250614

REACTIONS (4)
  - Pleural effusion [Unknown]
  - Encephalopathy [Recovered/Resolved]
  - Disease progression [Unknown]
  - Urinary tract infection [Unknown]

NARRATIVE: CASE EVENT DATE: 20250615
